FAERS Safety Report 10193352 (Version 1)
Quarter: 2014Q2

REPORT INFORMATION
  Report Type: Spontaneous
  Country: US (occurrence: US)
  Receive Date: 20140524
  Receipt Date: 20140524
  Transmission Date: 20141212
  Serious: No
  Sender: FDA-Public Use
  Company Number: US-SA-2013SA112968

PATIENT
  Age: 75 Year
  Sex: Female
  Weight: 88.45 kg

DRUGS (4)
  1. LANTUS SOLOSTAR [Suspect]
     Indication: TYPE 2 DIABETES MELLITUS
     Dosage: START- 6 MONTHS AGO DOSE:40 UNIT(S)
     Route: 051
  2. LANTUS SOLOSTAR [Suspect]
     Indication: TYPE 2 DIABETES MELLITUS
     Dosage: START- 6 MONTHS AGO DOSE:40 UNIT(S)
     Route: 051
  3. SOLOSTAR [Concomitant]
     Indication: TYPE 2 DIABETES MELLITUS
  4. LOSARTAN POTASSIUM [Concomitant]
     Indication: BLOOD PRESSURE
     Route: 065
     Dates: start: 2011

REACTIONS (3)
  - Burning sensation [Recovered/Resolved]
  - Blood glucose abnormal [Unknown]
  - Pruritus [Recovered/Resolved]
